FAERS Safety Report 12833758 (Version 3)
Quarter: 2017Q1

REPORT INFORMATION
  Report Type: Report from Study
  Country: US (occurrence: US)
  Receive Date: 20161010
  Receipt Date: 20170103
  Transmission Date: 20170428
  Serious: Yes (Hospitalization)
  Sender: FDA-Public Use
  Company Number: US-JNJFOC-20161004197

PATIENT
  Age: 18 Year
  Sex: Male
  Weight: 83.3 kg

DRUGS (44)
  1. SODIUM CHLORIDE. [Concomitant]
     Active Substance: SODIUM CHLORIDE
     Route: 065
  2. HEPARIN [Concomitant]
     Active Substance: HEPARIN SODIUM
     Route: 065
  3. DEXTROSE. [Concomitant]
     Active Substance: DEXTROSE
     Route: 065
  4. FIORICET [Concomitant]
     Active Substance: ACETAMINOPHEN\BUTALBITAL\CAFFEINE
     Route: 065
  5. POTASSIUM CHLORIDE. [Concomitant]
     Active Substance: POTASSIUM CHLORIDE
     Route: 065
  6. FLONASE [Concomitant]
     Active Substance: FLUTICASONE PROPIONATE
     Route: 065
  7. SELENIUM [Concomitant]
     Active Substance: SELENIUM
     Route: 065
  8. MIDODRINE [Concomitant]
     Active Substance: MIDODRINE
     Route: 065
  9. NEURONTIN [Concomitant]
     Active Substance: GABAPENTIN
     Route: 065
  10. LINZESS [Concomitant]
     Active Substance: LINACLOTIDE
     Route: 065
  11. NEXIUM [Concomitant]
     Active Substance: ESOMEPRAZOLE MAGNESIUM
     Route: 065
  12. PULMICORT TURBUHALER [Concomitant]
     Active Substance: BUDESONIDE
     Route: 065
  13. RIBOFLAVIN [Concomitant]
     Active Substance: RIBOFLAVIN
     Route: 065
  14. VITAMIN D [Concomitant]
     Active Substance: CHOLECALCIFEROL
     Route: 065
  15. ZYRTEC [Concomitant]
     Active Substance: CETIRIZINE HYDROCHLORIDE
     Route: 065
  16. CITROMA [Concomitant]
     Active Substance: MAGNESIUM CITRATE
     Route: 065
  17. MAGNESIUM OXIDE. [Concomitant]
     Active Substance: MAGNESIUM OXIDE
     Route: 065
  18. ALPHA LIPOIC ACID [Concomitant]
     Active Substance: .ALPHA.-LIPOIC ACID
     Route: 065
  19. COENZYME Q10 [Concomitant]
     Active Substance: UBIDECARENONE
     Route: 065
  20. BENADRYL [Concomitant]
     Active Substance: DIPHENHYDRAMINE HYDROCHLORIDE
     Route: 065
  21. REMICADE [Suspect]
     Active Substance: INFLIXIMAB
     Indication: INFLAMMATORY BOWEL DISEASE
     Route: 042
     Dates: start: 20130731, end: 20140424
  22. VITAMIN E\VITAMINS [Concomitant]
     Active Substance: .ALPHA.-TOCOPHEROL\VITAMINS
     Route: 065
  23. MODAFINIL. [Concomitant]
     Active Substance: MODAFINIL
     Route: 065
  24. ZOFRAN [Concomitant]
     Active Substance: ONDANSETRON HYDROCHLORIDE
     Route: 065
  25. EPIPEN [Concomitant]
     Active Substance: EPINEPHRINE
     Route: 065
  26. NALTREXONE [Concomitant]
     Active Substance: NALTREXONE
     Route: 065
  27. ATARAX [Concomitant]
     Active Substance: HYDROXYZINE HYDROCHLORIDE
     Route: 065
  28. VITAMIN C [Concomitant]
     Active Substance: ASCORBIC ACID
     Route: 065
  29. REMICADE [Suspect]
     Active Substance: INFLIXIMAB
     Indication: INFLAMMATORY BOWEL DISEASE
     Route: 042
     Dates: start: 20050807, end: 20100507
  30. AZELASTINE [Concomitant]
     Active Substance: AZELASTINE
     Route: 065
  31. MELATONIN [Concomitant]
     Active Substance: MELATONIN
     Route: 065
  32. HIZENTRA [Concomitant]
     Active Substance: HUMAN IMMUNOGLOBULIN G
     Route: 065
     Dates: end: 201609
  33. CALCIUM CARBONATE. [Concomitant]
     Active Substance: CALCIUM CARBONATE
     Route: 065
  34. KLONOPIN [Concomitant]
     Active Substance: CLONAZEPAM
     Route: 065
  35. ATENOLOL. [Concomitant]
     Active Substance: ATENOLOL
     Route: 065
  36. UCERIS [Concomitant]
     Active Substance: BUDESONIDE
     Route: 065
  37. GLYCOLAX [Concomitant]
     Active Substance: POLYETHYLENE GLYCOL 3350
     Route: 065
  38. CLONIDINE. [Concomitant]
     Active Substance: CLONIDINE
     Route: 065
  39. CARBOXYMETHYLCELLULOSE [Concomitant]
     Active Substance: CARBOXYMETHYLCELLULOSE
     Route: 065
  40. TYLENOL [Concomitant]
     Active Substance: ACETAMINOPHEN
     Route: 065
  41. PENTASA [Concomitant]
     Active Substance: MESALAMINE
     Route: 065
  42. LABETALOL [Concomitant]
     Active Substance: LABETALOL\LABETALOL HYDROCHLORIDE
     Route: 065
  43. LEVALBUTEROL HYDROCHLORIDE. [Concomitant]
     Active Substance: LEVALBUTEROL HYDROCHLORIDE
     Route: 065
  44. FOLIC ACID. [Concomitant]
     Active Substance: FOLIC ACID
     Route: 065

REACTIONS (1)
  - Device breakage [Recovered/Resolved]

NARRATIVE: CASE EVENT DATE: 20160930
